FAERS Safety Report 6120258-0 (Version None)
Quarter: 2009Q1

REPORT INFORMATION
  Report Type: 
  Country: None (occurrence: None)
  Receive Date: 20090312
  Receipt Date: 20090225
  Transmission Date: 20090719
  Serious: Yes (Death)
  Sender: FDA-Public Use
  Company Number: B0563075A

PATIENT
  Age: 54 Year
  Sex: Male

DRUGS (6)
  1. MELPHALAN (FORMULATION UNKNOWN) (GENERIC) (MELPHALAN) [Suspect]
     Indication: MULTIPLE MYELOMA
  2. CYCLOPHOSPHAMIDE [Concomitant]
  3. THALIDOMIDE [Concomitant]
  4. RADIOTHERAPY [Concomitant]
  5. CISPLATIN [Concomitant]
  6. BORTEZOMIB [Concomitant]

REACTIONS (11)
  - DISEASE RECURRENCE [None]
  - DRUG TOXICITY [None]
  - ENGRAFTMENT SYNDROME [None]
  - FEBRILE NEUTROPENIA [None]
  - GRAFT VERSUS HOST DISEASE [None]
  - ILEAL ULCER [None]
  - LEUKAEMIA PLASMACYTIC [None]
  - LEUKAEMIA RECURRENT [None]
  - MULTIPLE MYELOMA [None]
  - NERVOUS SYSTEM DISORDER [None]
  - STEM CELL TRANSPLANT [None]
